FAERS Safety Report 5488194-0 (Version None)
Quarter: 2007Q4

REPORT INFORMATION
  Report Type: 
  Country: None (occurrence: None)
  Receive Date: 20071017
  Receipt Date: 20071009
  Transmission Date: 20080405
  Serious: Yes (Hospitalization)
  Sender: FDA-Public Use
  Company Number: US-ELI_LILLY_AND_COMPANY-US200709001954

PATIENT
  Age: 35 Year
  Sex: Female
  Weight: 83.447 kg

DRUGS (1)
  1. ZYPREXA [Suspect]
     Indication: PSYCHOTIC DISORDER
     Dosage: 5 MG, UNK
     Dates: start: 20000101

REACTIONS (5)
  - FATIGUE [None]
  - HAEMOGLOBIN DECREASED [None]
  - MENORRHAGIA [None]
  - MENSTRUATION IRREGULAR [None]
  - OLIGOMENORRHOEA [None]
